FAERS Safety Report 16337006 (Version 1)
Quarter: 2019Q2

REPORT INFORMATION
  Report Type: Spontaneous
  Country: US (occurrence: US)
  Receive Date: 20190410
  Receipt Date: 20190410
  Transmission Date: 20190711
  Serious: No
  Sender: FDA-Public Use
  Company Number: None

PATIENT
  Age: 73 Year
  Sex: Female

DRUGS (1)
  1. IBRANCE [Suspect]
     Active Substance: PALBOCICLIB
     Indication: NEOPLASM MALIGNANT
     Dosage: ?          OTHER FREQUENCY:DAILY FOR 21 DAYS;?
     Route: 048
     Dates: start: 20180418

REACTIONS (1)
  - Influenza [None]

NARRATIVE: CASE EVENT DATE: 20190330
